FAERS Safety Report 24991298 (Version 2)
Quarter: 2025Q1

REPORT INFORMATION
  Report Type: Report from Study
  Country: GB (occurrence: GB)
  Receive Date: 20250220
  Receipt Date: 20250317
  Transmission Date: 20250409
  Serious: Yes (Death, Hospitalization, Other)
  Sender: ABBVIE
  Company Number: GB-ABBVIE-6141454

PATIENT
  Sex: Male

DRUGS (1)
  1. SKYRIZI [Suspect]
     Active Substance: RISANKIZUMAB-RZAA
     Indication: Product used for unknown indication
     Route: 058

REACTIONS (8)
  - Pulmonary embolism [Fatal]
  - Deep vein thrombosis [Fatal]
  - Gastrointestinal stromal tumour [Unknown]
  - Abdominal pain [Unknown]
  - Benign neoplasm [Unknown]
  - Cardiac arrest [Unknown]
  - General physical health deterioration [Unknown]
  - Haemodynamic instability [Unknown]
